FAERS Safety Report 8341541-4 (Version None)
Quarter: 2012Q2

REPORT INFORMATION
  Report Type: 
  Country: None (occurrence: None)
  Receive Date: 20120507
  Receipt Date: 20100322
  Transmission Date: 20120825
  Serious: No
  Sender: FDA-Public Use
  Company Number: US-TEVA-2010001387

PATIENT
  Age: 51 Year
  Sex: Male
  Weight: 85.806 kg

DRUGS (16)
  1. FAMOTIDINE [Concomitant]
  2. FOLIC ACID [Concomitant]
  3. DEXAMETHASONE [Concomitant]
  4. FISH OIL [Concomitant]
  5. ASTEPRO [Concomitant]
  6. TREANDA [Suspect]
     Indication: CHRONIC LYMPHOCYTIC LEUKAEMIA
     Route: 042
     Dates: start: 20100215
  7. PREVACID [Concomitant]
  8. LOPRESSOR [Concomitant]
  9. COMPAZINE [Concomitant]
  10. DOLASETRON [Concomitant]
  11. LEVOTHYROXINE SODIUM [Concomitant]
  12. DIPHENHYDRAMINE HCL [Concomitant]
  13. MULTI-VITAMIN [Concomitant]
  14. CLARITIN [Concomitant]
  15. RITUXAN [Concomitant]
     Dates: start: 20100215
  16. IBUPROFEN TABLETS [Concomitant]

REACTIONS (1)
  - RASH ERYTHEMATOUS [None]
